FAERS Safety Report 16860420 (Version 2)
Quarter: 2019Q4

REPORT INFORMATION
  Report Type: Report from Study
  Country: CN (occurrence: CN)
  Receive Date: 20190927
  Receipt Date: 20191104
  Transmission Date: 20200122
  Serious: Yes (Other)
  Sender: FDA-Public Use
  Company Number: PHHO2019CN009396

PATIENT
  Age: 67 Year
  Sex: Female
  Weight: 56.5 kg

DRUGS (18)
  1. GLUTATHIONE [Concomitant]
     Active Substance: GLUTATHIONE
     Indication: ALANINE AMINOTRANSFERASE INCREASED
     Dosage: UNK
     Route: 065
     Dates: start: 20190614, end: 20190616
  2. BLINDED LEE011 [Suspect]
     Active Substance: RIBOCICLIB
     Dosage: 600 MG, OTHER
     Route: 048
     Dates: end: 20190711
  3. URSODEOXYCHOLIC ACID [Concomitant]
     Active Substance: URSODIOL
     Indication: PRODUCT USED FOR UNKNOWN INDICATION
     Dosage: UNK
     Route: 065
  4. COMPOUND GLYCYRRHIZIN [Concomitant]
     Indication: ASPARTATE AMINOTRANSFERASE INCREASED
  5. POLYENE PHOSPHATIDYLCHOLINE [Concomitant]
     Active Substance: PHOSPHOLIPID
     Indication: ALANINE AMINOTRANSFERASE INCREASED
  6. BLINDED LEE011 [Suspect]
     Active Substance: RIBOCICLIB
     Indication: BREAST CANCER
     Dosage: 600 MG, OTHER
     Route: 048
     Dates: start: 20190516, end: 20190614
  7. BLINDED LEE011 [Suspect]
     Active Substance: RIBOCICLIB
     Dosage: 600 MG, OTHER
     Route: 048
     Dates: end: 20190711
  8. BLINDED NO TREATMENT RECEIVED [Suspect]
     Active Substance: INVESTIGATIONAL PRODUCT
     Dosage: 600 MG, OTHER
     Route: 048
     Dates: end: 20190711
  9. BLINDED PLACEBO [Suspect]
     Active Substance: INVESTIGATIONAL PRODUCT
     Dosage: 600 MG, OTHER
     Route: 048
     Dates: end: 20190711
  10. GLUTATHIONE [Concomitant]
     Active Substance: GLUTATHIONE
     Indication: ASPARTATE AMINOTRANSFERASE INCREASED
  11. POLYENE PHOSPHATIDYLCHOLINE [Concomitant]
     Active Substance: PHOSPHOLIPID
     Indication: ASPARTATE AMINOTRANSFERASE INCREASED
     Dosage: UNK
     Route: 065
     Dates: start: 20190618, end: 20190620
  12. BICYCLOL [Concomitant]
     Active Substance: BICYCLOL
     Indication: ALANINE AMINOTRANSFERASE INCREASED
     Dosage: UNK
     Route: 065
     Dates: start: 20190618, end: 20190803
  13. BLINDED NO TREATMENT RECEIVED [Suspect]
     Active Substance: INVESTIGATIONAL PRODUCT
     Indication: BREAST CANCER
     Dosage: 600 MG, OTHER
     Route: 048
     Dates: start: 20190516, end: 20190614
  14. BLINDED PLACEBO [Suspect]
     Active Substance: INVESTIGATIONAL PRODUCT
     Indication: BREAST CANCER
     Dosage: 600 MG, OTHER
     Route: 048
     Dates: start: 20190516, end: 20190614
  15. COMPARATOR LETROZOLE [Suspect]
     Active Substance: LETROZOLE
     Indication: BREAST CANCER
     Dosage: 2.5 MG, QD
     Route: 048
     Dates: start: 20190516, end: 20190710
  16. COMPOUND GLYCYRRHIZIN [Concomitant]
     Indication: ALANINE AMINOTRANSFERASE INCREASED
     Dosage: UNK
     Route: 065
     Dates: start: 20190614, end: 20190616
  17. BICYCLOL [Concomitant]
     Active Substance: BICYCLOL
     Indication: ASPARTATE AMINOTRANSFERASE INCREASED
  18. BLINDED LEE011 [Suspect]
     Active Substance: RIBOCICLIB
     Indication: BREAST CANCER
     Dosage: 600 MG, OTHER
     Route: 048
     Dates: start: 20190516, end: 20190614

REACTIONS (2)
  - Drug-induced liver injury [Unknown]
  - Drug-induced liver injury [Recovered/Resolved]

NARRATIVE: CASE EVENT DATE: 20190613
